FAERS Safety Report 9550826 (Version 1)
Quarter: 2013Q3

REPORT INFORMATION
  Report Type: Spontaneous
  Country: US (occurrence: US)
  Receive Date: 20130924
  Receipt Date: 20130924
  Transmission Date: 20140515
  Serious: No
  Sender: FDA-Public Use
  Company Number: US-SANOFI-AVENTIS-2013SA039200

PATIENT
  Age: 53 Year
  Sex: Female
  Weight: 81 kg

DRUGS (5)
  1. AUBAGIO [Suspect]
     Indication: MULTIPLE SCLEROSIS
     Route: 048
     Dates: start: 20130325
  2. GABAPENTIN [Concomitant]
     Indication: MULTIPLE SCLEROSIS
     Dates: start: 200806
  3. ANTIHYPERTENSIVES [Concomitant]
     Indication: PULMONARY ARTERIAL HYPERTENSION
     Dates: start: 2009
  4. BACLOFEN [Concomitant]
     Indication: MUSCLE SPASMS
     Dates: start: 2009
  5. OMEPRAZOLE [Concomitant]
     Indication: GASTROOESOPHAGEAL REFLUX DISEASE
     Dates: start: 2009

REACTIONS (7)
  - Throat irritation [Recovered/Resolved]
  - Chest pain [Recovered/Resolved]
  - Paraesthesia [Not Recovered/Not Resolved]
  - Anorectal discomfort [Recovered/Resolved]
  - Paraesthesia [Recovering/Resolving]
  - Diarrhoea [Not Recovered/Not Resolved]
  - Cough [Not Recovered/Not Resolved]
